FAERS Safety Report 8891279 (Version 1)
Quarter: 2012Q4

REPORT INFORMATION
  Report Type: 
  Country: FR (occurrence: FR)
  Receive Date: 20121107
  Receipt Date: 20121107
  Transmission Date: 20130627
  Serious: Yes (Other)
  Sender: FDA-Public Use
  Company Number: FR-BAYER-2012-088282

PATIENT
  Age: 74 Year
  Sex: Male

DRUGS (2)
  1. LEVITRA [Suspect]
     Dosage: 10 mg, OW
     Route: 048
     Dates: start: 200904
  2. MICARDIS [Concomitant]
     Indication: HYPERTENSION ARTERIAL
     Dosage: 80 mg, QD
     Route: 048
     Dates: start: 201005

REACTIONS (4)
  - Scrotal pain [Recovering/Resolving]
  - Scrotal swelling [Recovering/Resolving]
  - Conjunctivitis [Recovered/Resolved]
  - Eye irritation [Recovered/Resolved]
